FAERS Safety Report 7406713-1 (Version None)
Quarter: 2011Q2

REPORT INFORMATION
  Report Type: 
  Country: None (occurrence: None)
  Receive Date: 20110411
  Receipt Date: 20110331
  Transmission Date: 20111010
  Serious: Yes (Disabling)
  Sender: FDA-Public Use
  Company Number: JP-ASTRAZENECA-2011SE17834

PATIENT
  Age: 24223 Day
  Sex: Female
  Weight: 46 kg

DRUGS (1)
  1. CRESTOR [Suspect]
     Indication: HYPERLIPIDAEMIA
     Route: 048
     Dates: start: 20110114, end: 20110323

REACTIONS (2)
  - RETINAL HAEMORRHAGE [None]
  - EPISTAXIS [None]
